FAERS Safety Report 15370232 (Version 1)
Quarter: 2018Q3

REPORT INFORMATION
  Report Type: Spontaneous
  Country: US (occurrence: US)
  Receive Date: 20180904
  Receipt Date: 20180904
  Transmission Date: 20181010
  Serious: No
  Sender: FDA-Public Use
  Company Number: None

PATIENT
  Age: 63 Year
  Sex: Female
  Weight: 76.05 kg

DRUGS (2)
  1. CARBAMAZAPINE [Suspect]
     Active Substance: CARBAMAZEPINE
     Indication: IDIOPATHIC GENERALISED EPILEPSY
     Dosage: ?          QUANTITY:2 DF DOSAGE FORM;?
     Route: 048
  2. HAIR SKIN AND NAILS VITAMINS [Concomitant]

REACTIONS (4)
  - Product substitution issue [None]
  - Affect lability [None]
  - Aphasia [None]
  - Cognitive disorder [None]
